FAERS Safety Report 12966147 (Version 1)
Quarter: 2016Q4

REPORT INFORMATION
  Report Type: Spontaneous
  Country: US (occurrence: US)
  Receive Date: 20161118
  Receipt Date: 20161118
  Transmission Date: 20170207
  Serious: Yes (Hospitalization)
  Sender: FDA-Public Use
  Company Number: None

PATIENT
  Age: 63 Year
  Sex: Male
  Weight: 94.5 kg

DRUGS (3)
  1. FOSINOPRIL [Suspect]
     Active Substance: FOSINOPRIL
     Indication: HYPERTENSION
     Route: 048
     Dates: start: 20130701, end: 20160905
  2. FOSINOPRIL [Suspect]
     Active Substance: FOSINOPRIL
     Indication: DIABETES MELLITUS
     Route: 048
     Dates: start: 20130701, end: 20160905
  3. SONIDEGIB [Suspect]
     Active Substance: SONIDEGIB
     Indication: HEPATOCELLULAR CARCINOMA
     Dates: start: 20160812, end: 20160818

REACTIONS (2)
  - Angioedema [None]
  - Urticaria [None]

NARRATIVE: CASE EVENT DATE: 20160904
